FAERS Safety Report 18079739 (Version 1)
Quarter: 2020Q3

REPORT INFORMATION
  Report Type: Spontaneous
  Country: US (occurrence: US)
  Receive Date: 20200728
  Receipt Date: 20200728
  Transmission Date: 20201103
  Serious: No
  Sender: FDA-Public Use
  Company Number: None

PATIENT
  Sex: Female

DRUGS (1)
  1. CINACALET HCL 30MG CIPLA USA [Suspect]
     Active Substance: CINACALCET HYDROCHLORIDE
     Indication: HYPOTHALAMO-PITUITARY DISORDER
     Route: 048
     Dates: start: 20200617

REACTIONS (4)
  - Swelling [None]
  - Hypersensitivity [None]
  - Fluid retention [None]
  - Pruritus [None]
